FAERS Safety Report 15676502 (Version 3)
Quarter: 2019Q3

REPORT INFORMATION
  Report Type: Report from Study
  Country: GB (occurrence: GB)
  Receive Date: 20181130
  Receipt Date: 20190717
  Transmission Date: 20191004
  Serious: Yes (Death)
  Sender: FDA-Public Use
  Company Number: GB-PFIZER INC-2018492523

PATIENT

DRUGS (4)
  1. DOXORUBICIN [Suspect]
     Active Substance: DOXORUBICIN
     Indication: HODGKIN^S DISEASE
     Dosage: 25 MG/M2, CYCLIC (ON DAYS 1 AND 15 OF UP TO SIX 28-DAY CYCLES)
     Route: 042
  2. DACARBAZINE. [Suspect]
     Active Substance: DACARBAZINE
     Indication: HODGKIN^S DISEASE
     Dosage: 375 MG/M2, CYCLIC (ON DAYS 1 AND 15 OF UP TO SIX 28-DAY CYCLES)
     Route: 042
  3. BLEOMYCIN [Suspect]
     Active Substance: BLEOMYCIN SULFATE
     Indication: HODGKIN^S DISEASE
     Dosage: 10 UNITS/M2; CYCLIC (ON DAYS 1 AND 15 OF UP TO SIX 28-DAY CYCLES)
     Route: 042
  4. VINBLASTINE [Suspect]
     Active Substance: VINBLASTINE
     Indication: HODGKIN^S DISEASE
     Dosage: 6 MG/M2, CYCLIC (ON DAYS 1 AND 15 OF UP TO SIX 28-DAY CYCLES)
     Route: 042

REACTIONS (1)
  - Pulmonary toxicity [Fatal]
